FAERS Safety Report 8302860-0 (Version None)
Quarter: 2012Q2

REPORT INFORMATION
  Report Type: 
  Country: None (occurrence: None)
  Receive Date: 20120420
  Receipt Date: 20120417
  Transmission Date: 20120825
  Serious: Yes (Hospitalization)
  Sender: FDA-Public Use
  Company Number: US-PFIZER INC-2012094361

PATIENT
  Age: 19 Year
  Sex: Female
  Weight: 67.9 kg

DRUGS (2)
  1. ATRACURIUM BESYLATE [Suspect]
     Indication: ACUTE PROMYELOCYTIC LEUKAEMIA
     Dosage: 45 MG/M2/DAY, EVERY 12 HOURS, WITH FOOD (IN 2 DOSES, DAYS 1-7 EVERY 12 HOURS)
     Route: 048
     Dates: start: 20110520
  2. IDARUBICIN HCL [Suspect]
     Indication: ACUTE PROMYELOCYTIC LEUKAEMIA
     Dosage: 12 MG/M2, 1X/DAY, DAYS 1-3
     Dates: start: 20110520

REACTIONS (1)
  - FEBRILE NEUTROPENIA [None]
